FAERS Safety Report 5814650-9 (Version None)
Quarter: 2008Q3

REPORT INFORMATION
  Report Type: 
  Country: None (occurrence: None)
  Receive Date: 20080718
  Receipt Date: 20071116
  Transmission Date: 20090109
  Serious: No
  Sender: FDA-Public Use
  Company Number: US-KINGPHARMUSA00001-K200701494

PATIENT

DRUGS (2)
  1. LEVOXYL [Suspect]
     Dosage: 37.5 MCG (ONE AND 1/2 25 MCG TABLETS), QD
     Route: 048
     Dates: start: 20060101
  2. LEVOXYL [Suspect]
     Dosage: UNK, UNK

REACTIONS (1)
  - URTICARIA [None]
